FAERS Safety Report 8893170 (Version 1)
Quarter: 2012Q4

REPORT INFORMATION
  Report Type: 
  Country: US (occurrence: US)
  Receive Date: 20121107
  Receipt Date: 20121107
  Transmission Date: 20130627
  Serious: No
  Sender: FDA-Public Use
  Company Number: US-AMGEN-USASP2011059665

PATIENT
  Age: 57 Year
  Sex: Male

DRUGS (2)
  1. ENBREL [Suspect]
     Indication: PSORIATIC ARTHROPATHY
     Dosage: 50 mg, qwk
     Dates: start: 20100509, end: 201108
  2. CIMZIA [Concomitant]
     Dosage: UNK

REACTIONS (3)
  - Pain [Unknown]
  - Therapy cessation [Unknown]
  - Drug ineffective [Unknown]
